FAERS Safety Report 6282531-5 (Version None)
Quarter: 2009Q3

REPORT INFORMATION
  Report Type: 
  Country: None (occurrence: None)
  Receive Date: 20090724
  Receipt Date: 20090708
  Transmission Date: 20100115
  Serious: No
  Sender: FDA-Public Use
  Company Number: CZ-AVENTIS-200819538GDDC

PATIENT
  Age: 32 Year
  Sex: Female

DRUGS (1)
  1. ARAVA [Suspect]
     Route: 048
     Dates: start: 20050101, end: 20071031

REACTIONS (1)
  - DRUG EXPOSURE DURING PREGNANCY [None]
